FAERS Safety Report 20243916 (Version 1)
Quarter: 2021Q4

REPORT INFORMATION
  Report Type: Spontaneous
  Country: US (occurrence: US)
  Receive Date: 20211228
  Receipt Date: 20211228
  Transmission Date: 20220303
  Serious: Yes (Other)
  Sender: FDA-Public Use
  Company Number: US-COOPERSURGICAL, INC.-US-2021CPS002211

PATIENT
  Age: 30 Year
  Sex: Female
  Weight: 65.76 kg

DRUGS (4)
  1. PARAGARD T 380A [Suspect]
     Active Substance: COPPER
     Indication: Contraception
     Dosage: UNK
     Route: 015
     Dates: start: 20161027, end: 20210723
  2. LORATADINE [Concomitant]
     Active Substance: LORATADINE
     Indication: Product used for unknown indication
     Dosage: UNK, PRN
     Route: 065
  3. FLONASE                            /00972202/ [Concomitant]
     Indication: Product used for unknown indication
     Dosage: UNK, PRN
     Route: 065
  4. MULTIVITAMIN                       /00097801/ [Concomitant]
     Indication: Product used for unknown indication
     Route: 065

REACTIONS (3)
  - Device breakage [Recovered/Resolved]
  - Foreign body in reproductive tract [Recovered/Resolved]
  - Complication of device removal [Recovered/Resolved]

NARRATIVE: CASE EVENT DATE: 20210719
